FAERS Safety Report 18776858 (Version 2)
Quarter: 2021Q1

REPORT INFORMATION
  Report Type: Spontaneous
  Country: PL (occurrence: PL)
  Receive Date: 20210122
  Receipt Date: 20210211
  Transmission Date: 20210419
  Serious: Yes (Hospitalization, Other)
  Sender: FDA-Public Use
  Company Number: PL-PFIZER INC-2021038600

PATIENT
  Age: 68 Year
  Sex: Male

DRUGS (11)
  1. METOPROLOL. [Concomitant]
     Active Substance: METOPROLOL
     Dosage: 100 MG
     Route: 048
  2. FLUCONAZOL [Interacting]
     Active Substance: FLUCONAZOLE
     Dosage: UNK
  3. FLUCONAZOLE. [Interacting]
     Active Substance: FLUCONAZOLE
     Indication: INFECTION
     Dosage: 100 MG, 2X/DAY
  4. QUETIAPINE. [Concomitant]
     Active Substance: QUETIAPINE
     Dosage: UNK
  5. ATORVASTATIN CALCIUM. [Suspect]
     Active Substance: ATORVASTATIN CALCIUM
     Dosage: 40 MG
     Route: 048
  6. XARELTO [Interacting]
     Active Substance: RIVAROXABAN
     Dosage: 20 MG
     Route: 048
  7. QUETIAPINE FUMARATE. [Interacting]
     Active Substance: QUETIAPINE FUMARATE
     Dosage: 50 MG PER NIGHT
  8. METOPROLOL. [Concomitant]
     Active Substance: METOPROLOL
     Dosage: 10 MG
  9. QUETIAPINE FUMARATE. [Interacting]
     Active Substance: QUETIAPINE FUMARATE
     Dosage: 25 MG PER NIGHT
  10. FUROSEMIDE. [Interacting]
     Active Substance: FUROSEMIDE
     Dosage: 40 MG
     Route: 048
  11. CIPROBAY [CIPROFLOXACIN HYDROCHLORIDE] [Interacting]
     Active Substance: CIPROFLOXACIN HYDROCHLORIDE
     Indication: INFECTION
     Dosage: 500 MG, BID
     Route: 048

REACTIONS (4)
  - Drug interaction [Unknown]
  - Penis injury [Unknown]
  - Pruritus genital [Recovered/Resolved]
  - Penile haemorrhage [Unknown]
